FAERS Safety Report 5573159-0 (Version None)
Quarter: 2007Q4

REPORT INFORMATION
  Report Type: 
  Country: None (occurrence: None)
  Receive Date: 20071224
  Receipt Date: 20071217
  Transmission Date: 20080405
  Serious: Yes (Other)
  Sender: FDA-Public Use
  Company Number: AT-BAYER-200718364GPV

PATIENT
  Age: 75 Year
  Sex: Female
  Weight: 62 kg

DRUGS (1)
  1. ULTRAVIST (PHARMACY BULK) [Suspect]
     Indication: SCAN WITH CONTRAST

REACTIONS (3)
  - NAUSEA [None]
  - VERTIGO [None]
  - VOMITING [None]
